FAERS Safety Report 7328170-6 (Version None)
Quarter: 2011Q1

REPORT INFORMATION
  Report Type: 
  Country: None (occurrence: None)
  Receive Date: 20110303
  Receipt Date: 20110225
  Transmission Date: 20110831
  Serious: Yes (Death, Other)
  Sender: FDA-Public Use
  Company Number: ES-ELI_LILLY_AND_COMPANY-ES201102007389

PATIENT
  Sex: Female
  Weight: 70 kg

DRUGS (8)
  1. ISCOVER [Concomitant]
     Dosage: 1 D/F, DAILY (1/D)
     Route: 048
  2. OMEPRAZOLE [Concomitant]
     Dosage: 1 D/F, DAILY (1/D)
     Route: 048
  3. FORTEO [Suspect]
     Indication: OSTEOPOROSIS
     Dosage: 20 UG, DAILY (1/D)
     Route: 058
     Dates: start: 20101130
  4. COZAAR [Concomitant]
     Indication: HYPERTENSION
     Dosage: 1 D/F, DAILY (1/D)
     Route: 048
  5. ANGIODROX [Concomitant]
     Dosage: 2 D/F, DAILY (1/D)
     Route: 048
  6. HEMOVAS [Concomitant]
     Dosage: 2 D/F, DAILY (1/D)
     Route: 048
  7. DEPAKENE [Concomitant]
     Indication: EPILEPSY
     Dosage: 500 MG, DAILY (1/D)
     Route: 048
  8. SOMAZINA [Concomitant]
     Indication: CARDIOVASCULAR DISORDER
     Dosage: 50 D/F, DAILY (1/D)
     Route: 048

REACTIONS (5)
  - ASPHYXIA [None]
  - COMA [None]
  - ANURIA [None]
  - SEPSIS [None]
  - HYPERTENSION [None]
